FAERS Safety Report 9304600 (Version 1)
Quarter: 2013Q2

REPORT INFORMATION
  Report Type: Spontaneous
  Country: AU (occurrence: AU)
  Receive Date: 20130523
  Receipt Date: 20130523
  Transmission Date: 20140414
  Serious: Yes (Death)
  Sender: FDA-Public Use
  Company Number: AU-ROCHE-1226324

PATIENT
  Age: 57 Year
  Sex: Male

DRUGS (12)
  1. MYCOPHENOLATE MOFETIL [Suspect]
     Indication: PRODUCT USED FOR UNKNOWN INDICATION
     Route: 065
  2. COTRIMOXAZOLE [Suspect]
     Indication: PRODUCT USED FOR UNKNOWN INDICATION
     Route: 065
  3. LINEZOLID [Suspect]
     Indication: PRODUCT USED FOR UNKNOWN INDICATION
     Route: 048
  4. PREDNISONE [Suspect]
     Indication: PRODUCT USED FOR UNKNOWN INDICATION
     Route: 065
  5. TACROLIMUS [Suspect]
     Indication: PRODUCT USED FOR UNKNOWN INDICATION
     Route: 065
  6. CLARITHROMYCIN [Concomitant]
  7. DOXYCYCLINE HYDROCHLORIDE [Concomitant]
  8. ERTAPENEM SODIUM [Concomitant]
  9. MEROPENEM [Concomitant]
  10. MOXIFLOXACIN [Concomitant]
  11. RIFAMPICIN [Concomitant]
  12. VANCOMYCIN HYDROCHLORIDE [Concomitant]

REACTIONS (4)
  - Pneumocystis jirovecii pneumonia [Fatal]
  - Rhodococcus infection [Fatal]
  - Nephropathy toxic [Fatal]
  - Bone marrow failure [Fatal]
